FAERS Safety Report 10422530 (Version 1)
Quarter: 2014Q3

REPORT INFORMATION
  Report Type: Spontaneous
  Country: US (occurrence: US)
  Receive Date: 20140901
  Receipt Date: 20140901
  Transmission Date: 20150326
  Serious: No
  Sender: FDA-Public Use
  Company Number: US-009507513-1408USA013965

PATIENT
  Sex: Male

DRUGS (1)
  1. PROPECIA [Suspect]
     Active Substance: FINASTERIDE
     Indication: ALOPECIA
     Dosage: 10 MG ONCE PER DAY
     Route: 048
     Dates: start: 201402, end: 2014

REACTIONS (2)
  - Erectile dysfunction [Not Recovered/Not Resolved]
  - Semen volume decreased [Not Recovered/Not Resolved]

NARRATIVE: CASE EVENT DATE: 2014
